FAERS Safety Report 7104650-3 (Version None)
Quarter: 2010Q4

REPORT INFORMATION
  Report Type: 
  Country: None (occurrence: None)
  Receive Date: 20101116
  Receipt Date: 20101101
  Transmission Date: 20110411
  Serious: Yes (Hospitalization)
  Sender: FDA-Public Use
  Company Number: JP-JNJFOC-20100907809

PATIENT
  Age: 60 Year
  Sex: Male

DRUGS (3)
  1. MICONAZOLE NITRATE [Suspect]
     Route: 049
  2. MICONAZOLE NITRATE [Suspect]
     Indication: ILL-DEFINED DISORDER
     Dosage: 10G OF GEL (2.5G OF GEL 4 TIMES) PER DAY
     Route: 049
  3. WARFARIN [Interacting]
     Indication: ILL-DEFINED DISORDER
     Route: 048

REACTIONS (4)
  - DRUG INTERACTION [None]
  - HAEMORRHAGIC DIATHESIS [None]
  - PERICARDIAL HAEMORRHAGE [None]
  - PULMONARY HAEMORRHAGE [None]
